FAERS Safety Report 25724033 (Version 3)
Quarter: 2025Q4

REPORT INFORMATION
  Report Type: Spontaneous
  Country: US (occurrence: US)
  Receive Date: 20250826
  Receipt Date: 20251211
  Transmission Date: 20260117
  Serious: No
  Sender: BRISTOL-MYERS SQUIBB COMPANY
  Company Number: US-BRISTOL-MYERS SQUIBB COMPANY-2025-117332

PATIENT
  Age: 29 Year
  Sex: Male

DRUGS (3)
  1. COBENFY [Suspect]
     Active Substance: TROSPIUM CHLORIDE\XANOMELINE
     Indication: Cerebral disorder
     Dosage: DOSE: 50-20 MG,
     Route: 048
  2. COBENFY [Suspect]
     Active Substance: TROSPIUM CHLORIDE\XANOMELINE
     Dosage: DOSE: 100-20 MG
     Route: 048
  3. COBENFY [Suspect]
     Active Substance: TROSPIUM CHLORIDE\XANOMELINE
     Dosage: DOSE:50MG/20MG?STRENGTH:50MG/20MG
     Route: 048
     Dates: start: 202506

REACTIONS (4)
  - Gastrointestinal disorder [Unknown]
  - Vomiting [Unknown]
  - Visual impairment [Unknown]
  - Nausea [Unknown]
